FAERS Safety Report 24137942 (Version 5)
Quarter: 2024Q3

REPORT INFORMATION
  Report Type: Spontaneous
  Country: US (occurrence: US)
  Receive Date: 20240725
  Receipt Date: 20240904
  Transmission Date: 20241016
  Serious: No
  Sender: NOVARTIS
  Company Number: US-002147023-NVSC2024US152790

PATIENT
  Sex: Male
  Weight: 150 kg

DRUGS (2)
  1. PLUVICTO [Suspect]
     Active Substance: LUTETIUM LU-177 VIPIVOTIDE TETRAXETAN
     Indication: Chronic lymphocytic leukaemia
     Dosage: 200 MCI, EVERY 6 WEEKS, PUSH
     Route: 042
     Dates: start: 20240509, end: 20240509
  2. PLUVICTO [Suspect]
     Active Substance: LUTETIUM LU-177 VIPIVOTIDE TETRAXETAN
     Dosage: 200 MCI, PUSH
     Route: 042
     Dates: start: 20240620, end: 20240620

REACTIONS (5)
  - General physical health deterioration [Unknown]
  - Laboratory test abnormal [Unknown]
  - Haemoglobin abnormal [Unknown]
  - Platelet count decreased [Recovering/Resolving]
  - Off label use [Unknown]
